FAERS Safety Report 6453365-3 (Version None)
Quarter: 2009Q4

REPORT INFORMATION
  Report Type: 
  Country: None (occurrence: None)
  Receive Date: 20091124
  Receipt Date: 20091117
  Transmission Date: 20100525
  Serious: Yes (Hospitalization, Other)
  Sender: FDA-Public Use
  Company Number: GB-BAXTER-2009BH016316

PATIENT
  Age: 40 Year
  Sex: Female

DRUGS (24)
  1. CYCLOPHOSPHAMIDE [Suspect]
     Indication: PANCREATIC CARCINOMA METASTATIC
     Route: 042
     Dates: start: 20090917, end: 20090917
  2. CYCLOPHOSPHAMIDE [Suspect]
     Route: 042
     Dates: start: 20090916, end: 20090916
  3. MEROPENEM [Suspect]
     Indication: ANTIBIOTIC PROPHYLAXIS
     Route: 042
     Dates: start: 20090918, end: 20090922
  4. MEROPENEM [Suspect]
     Indication: NEUTROPENIC SEPSIS
     Route: 042
     Dates: start: 20090918, end: 20090922
  5. MEROPENEM [Suspect]
     Indication: INFECTION
     Route: 042
     Dates: start: 20090918, end: 20090922
  6. MEROPENEM [Suspect]
     Route: 042
     Dates: start: 20090923, end: 20090928
  7. MEROPENEM [Suspect]
     Route: 042
     Dates: start: 20090923, end: 20090928
  8. MEROPENEM [Suspect]
     Route: 042
     Dates: start: 20090923, end: 20090928
  9. MEROPENEM [Suspect]
     Route: 042
     Dates: start: 20091004, end: 20091012
  10. MEROPENEM [Suspect]
     Route: 042
     Dates: start: 20091004, end: 20091012
  11. MEROPENEM [Suspect]
     Route: 042
     Dates: start: 20091004, end: 20091012
  12. FLUDARABINE [Suspect]
     Indication: PANCREATIC CARCINOMA METASTATIC
     Route: 042
     Dates: start: 20090918, end: 20090922
  13. MFEZ [Suspect]
     Indication: PANCREATIC CARCINOMA METASTATIC
     Route: 042
     Dates: start: 20090923, end: 20090923
  14. PROLEUKIN [Suspect]
     Indication: PANCREATIC CARCINOMA METASTATIC
     Route: 040
     Dates: start: 20090923, end: 20090926
  15. TEICOPLANIN [Suspect]
     Indication: INFECTION
     Route: 065
     Dates: start: 20090918, end: 20090919
  16. TEICOPLANIN [Suspect]
     Indication: ANTIBIOTIC PROPHYLAXIS
     Route: 065
     Dates: start: 20090918, end: 20090919
  17. TEICOPLANIN [Suspect]
     Indication: NEUTROPENIC SEPSIS
     Route: 065
     Dates: start: 20090918, end: 20090919
  18. TEICOPLANIN [Suspect]
     Route: 065
     Dates: start: 20090923, end: 20090928
  19. TEICOPLANIN [Suspect]
     Route: 065
     Dates: start: 20090923, end: 20090928
  20. TEICOPLANIN [Suspect]
     Route: 065
     Dates: start: 20090923, end: 20090928
  21. MEROPENEM [Concomitant]
     Route: 042
     Dates: start: 20090918, end: 20090928
  22. MEROPENEM [Concomitant]
     Route: 042
     Dates: start: 20091004, end: 20091012
  23. TEICOPLANIN [Concomitant]
     Route: 042
     Dates: start: 20090918, end: 20090919
  24. TEICOPLANIN [Concomitant]
     Route: 042
     Dates: start: 20090923, end: 20090928

REACTIONS (7)
  - BLOOD BILIRUBIN INCREASED [None]
  - CLOSTRIDIUM DIFFICILE COLITIS [None]
  - DIARRHOEA [None]
  - FEBRILE NEUTROPENIA [None]
  - NEUTROPENIC SEPSIS [None]
  - PYREXIA [None]
  - THROMBOCYTOPENIA [None]
